FAERS Safety Report 9181081 (Version 1)
Quarter: 2013Q1

REPORT INFORMATION
  Report Type: Spontaneous
  Country: US (occurrence: None)
  Receive Date: 20120621
  Receipt Date: 20120621
  Transmission Date: 20140127
  Serious: Yes (Hospitalization, Other)
  Sender: FDA-Public Use
  Company Number: PIR#CC400137213

PATIENT
  Age: 55 Year
  Sex: Male
  Weight: 92 kg

DRUGS (1)
  1. CEFEPIME [Suspect]

REACTIONS (4)
  - Rash macular [None]
  - Injection site erythema [None]
  - Injection site warmth [None]
  - Diarrhoea [None]
